FAERS Safety Report 15558086 (Version 1)
Quarter: 2018Q4

REPORT INFORMATION
  Report Type: Spontaneous
  Country: US (occurrence: US)
  Receive Date: 20181027
  Receipt Date: 20181027
  Transmission Date: 20190205
  Serious: No
  Sender: FDA-Public Use
  Company Number: US-009507513-1810USA010017

PATIENT

DRUGS (3)
  1. DEXTROSE. [Suspect]
     Active Substance: DEXTROSE
     Route: 041
  2. POTASSIUM CHLORIDE. [Suspect]
     Active Substance: POTASSIUM CHLORIDE
     Route: 041
  3. CUBICIN [Suspect]
     Active Substance: DAPTOMYCIN
     Dosage: UNK
     Route: 041
     Dates: start: 20181022, end: 20181022

REACTIONS (5)
  - Underdose [Unknown]
  - Product deposit [Unknown]
  - No adverse event [Unknown]
  - Wrong technique in product usage process [Unknown]
  - Poor quality product administered [Unknown]

NARRATIVE: CASE EVENT DATE: 20181022
